FAERS Safety Report 23382955 (Version 2)
Quarter: 2024Q1

REPORT INFORMATION
  Report Type: Spontaneous
  Country: JP (occurrence: JP)
  Receive Date: 20240109
  Receipt Date: 20240116
  Transmission Date: 20240409
  Serious: Yes (Other)
  Sender: FDA-Public Use
  Company Number: JP-MLMSERVICE-20231228-4749482-1

PATIENT
  Age: 57 Year
  Sex: Female

DRUGS (5)
  1. RITUXIMAB [Suspect]
     Active Substance: RITUXIMAB
     Indication: Lymphoma
     Dosage: 510 MG, CYCLIC (21 DAYS PER CYCLE)
  2. PREDNISOLONE [Suspect]
     Active Substance: PREDNISOLONE
     Indication: Lymphoma
     Dosage: 65 MG, CYCLIC (21 DAYS PER CYCLE)
  3. CYCLOPHOSPHAMIDE [Suspect]
     Active Substance: CYCLOPHOSPHAMIDE
     Indication: Lymphoma
     Dosage: 1030 MG, CYCLIC (21 DAYS PER CYCLE)
  4. DOXORUBICIN [Suspect]
     Active Substance: DOXORUBICIN
     Indication: Lymphoma
     Dosage: 65 MG, CYCLIC (21 DAYS PER CYCLE)
  5. VINCRISTINE [Suspect]
     Active Substance: VINCRISTINE
     Indication: Lymphoma
     Dosage: 1.9 MG, CYCLIC (21 DAYS PER CYCLE)

REACTIONS (2)
  - Liver injury [Recovered/Resolved]
  - Hepatitis E [Recovered/Resolved]
